FAERS Safety Report 8356589-3 (Version None)
Quarter: 2012Q2

REPORT INFORMATION
  Report Type: 
  Country: None (occurrence: None)
  Receive Date: 20120514
  Receipt Date: 20120508
  Transmission Date: 20120825
  Serious: Yes (Other)
  Sender: FDA-Public Use
  Company Number: PHEH2012US008759

PATIENT
  Sex: Female
  Weight: 66.213 kg

DRUGS (5)
  1. VIVELLE-DOT [Suspect]
     Indication: ARTIFICIAL MENOPAUSE
     Dosage: 0.05 MG, QW2
     Route: 062
     Dates: start: 20120203, end: 20120216
  2. MECLIZINE HYDROCHLORIDE [Concomitant]
     Indication: VERTIGO
     Dosage: PRN
     Route: 048
  3. STOOL SOFTENER [Concomitant]
     Dosage: UNK
  4. VIVELLE-DOT [Suspect]
     Dosage: UNK
     Route: 062
  5. COLACE [Concomitant]
     Indication: CONSTIPATION
     Dosage: 100 MG, BID
     Route: 048

REACTIONS (9)
  - ABDOMINAL PAIN UPPER [None]
  - DYSPEPSIA [None]
  - CHEST DISCOMFORT [None]
  - FATIGUE [None]
  - CHEST PAIN [None]
  - PAIN IN EXTREMITY [None]
  - DIARRHOEA [None]
  - MUSCULOSKELETAL PAIN [None]
  - PAIN IN JAW [None]
